FAERS Safety Report 7394969-3 (Version None)
Quarter: 2011Q2

REPORT INFORMATION
  Report Type: 
  Country: None (occurrence: None)
  Receive Date: 20110405
  Receipt Date: 20110330
  Transmission Date: 20111010
  Serious: Yes (Hospitalization, Other)
  Sender: FDA-Public Use
  Company Number: US-PFIZER INC-2010063543

PATIENT
  Sex: Male

DRUGS (11)
  1. DILANTIN [Suspect]
     Dosage: 500 MG, UNK
     Dates: start: 20090908
  2. DILANTIN [Suspect]
     Dosage: 1000 MG, UNK
     Route: 042
     Dates: start: 20090907, end: 20090907
  3. OXYCODONE [Concomitant]
     Indication: PAIN
     Dosage: 10 MG, UNK
  4. DILANTIN [Suspect]
     Indication: CONVULSION
     Dosage: UNK
     Dates: start: 20090906, end: 20091024
  5. METFORMIN [Concomitant]
     Indication: DIABETES MELLITUS
     Dosage: 1000 MG, 2X/DAY
     Route: 048
  6. DILANTIN [Suspect]
     Dosage: 100 MG, UNK
     Route: 048
     Dates: start: 20090907
  7. GLIMEPIRIDE [Concomitant]
     Indication: DIABETES MELLITUS
     Dosage: 4 MG, 1X/DAY (EVERY MORNING)
  8. AUGMENTIN [Concomitant]
     Dosage: UNK
  9. DILANTIN [Suspect]
     Dosage: 5 TIMES A DAY
     Dates: start: 20090920
  10. ACTOS [Concomitant]
     Indication: DIABETES MELLITUS
     Dosage: 15 MG, 1X/DAY
     Route: 048
  11. DILANTIN [Suspect]
     Dosage: 200 MG, UNK
     Dates: start: 20090909

REACTIONS (1)
  - STEVENS-JOHNSON SYNDROME [None]
